FAERS Safety Report 4889495-7 (Version None)
Quarter: 2006Q1

REPORT INFORMATION
  Report Type: 
  Country: None (occurrence: None)
  Receive Date: 20060120
  Receipt Date: 20060110
  Transmission Date: 20060701
  Serious: Yes (Hospitalization)
  Sender: FDA-Public Use
  Company Number: 2005BI022023

PATIENT
  Age: 46 Year
  Sex: Female

DRUGS (7)
  1. AVONEX [Suspect]
     Indication: MULTIPLE SCLEROSIS
     Dosage: 30 UG; QW; IM
     Route: 030
     Dates: start: 20031204, end: 20040609
  2. AVONEX [Suspect]
     Indication: MULTIPLE SCLEROSIS
     Dosage: 30 UG; QW; IM
     Route: 030
     Dates: start: 20040616, end: 20051024
  3. AVONEX [Suspect]
     Indication: MULTIPLE SCLEROSIS
     Dosage: IM
     Route: 030
     Dates: start: 20051206
  4. DARVOCET [Concomitant]
  5. IBUPROFEN [Concomitant]
  6. STEROIDS [Concomitant]
  7. FIORICET [Concomitant]

REACTIONS (6)
  - BLOOD CULTURE POSITIVE [None]
  - BRAIN MASS [None]
  - CSF CELL COUNT ABNORMAL [None]
  - CSF GLUCOSE INCREASED [None]
  - HEADACHE [None]
  - WHITE BLOOD CELL COUNT INCREASED [None]
